FAERS Safety Report 4326904-6 (Version None)
Quarter: 2004Q1

REPORT INFORMATION
  Report Type: 
  Country: None (occurrence: None)
  Receive Date: 20040330
  Receipt Date: 20030411
  Transmission Date: 20041129
  Serious: Yes (Hospitalization)
  Sender: FDA-Public Use
  Company Number: US-MERCK-0304USA01426

PATIENT
  Age: 74 Year
  Sex: Male
  Weight: 82 kg

DRUGS (6)
  1. ASPIRIN [Concomitant]
     Indication: PROPHYLAXIS
     Route: 065
     Dates: start: 19791001
  2. PLAVIX [Concomitant]
     Indication: CHEST PAIN
     Route: 065
     Dates: start: 20010101
  3. PROSCAR [Concomitant]
     Route: 048
     Dates: start: 20000101
  4. GEMFIBROZIL [Concomitant]
     Route: 065
     Dates: start: 20010101
  5. ACCUPRIL [Concomitant]
     Indication: BLOOD PRESSURE
     Route: 065
     Dates: start: 19991001
  6. VIOXX [Suspect]
     Indication: PAIN
     Route: 048
     Dates: start: 20010710, end: 20010801

REACTIONS (9)
  - AORTIC ANEURYSM [None]
  - BLOOD CHOLESTEROL INCREASED [None]
  - CHEST PAIN [None]
  - EMOTIONAL DISORDER [None]
  - EMOTIONAL DISTRESS [None]
  - HEART RATE INCREASED [None]
  - HYPERTENSION [None]
  - INJURY [None]
  - STRESS SYMPTOMS [None]
